FAERS Safety Report 4482121-0 (Version None)
Quarter: 2004Q4

REPORT INFORMATION
  Report Type: 
  Country: None (occurrence: None)
  Receive Date: 20041020
  Receipt Date: 20041001
  Transmission Date: 20050328
  Serious: Yes (Hospitalization, Other)
  Sender: FDA-Public Use
  Company Number: USA041080199

PATIENT
  Age: 50 Year
  Sex: Female

DRUGS (2)
  1. SYMBYAX [Suspect]
  2. PROZAC [Suspect]

REACTIONS (2)
  - CARDIAC FAILURE [None]
  - OEDEMA PERIPHERAL [None]
